FAERS Safety Report 4290924-0 (Version None)
Quarter: 2004Q1

REPORT INFORMATION
  Report Type: 
  Country: None (occurrence: None)
  Receive Date: 20040209
  Receipt Date: 20040126
  Transmission Date: 20041129
  Serious: Yes (Hospitalization)
  Sender: FDA-Public Use
  Company Number: 204344

PATIENT
  Age: 46 Year
  Sex: Female

DRUGS (5)
  1. HERCEPTIN [Suspect]
     Indication: BREAST CANCER
     Dosage: 208 MG, SINGLE, INTRAVENOUS; 104 MG, 1/WEEK, INTRAVENOUS
     Route: 042
     Dates: start: 20031218, end: 20031218
  2. HERCEPTIN [Suspect]
     Indication: BREAST CANCER
     Dosage: 208 MG, SINGLE, INTRAVENOUS; 104 MG, 1/WEEK, INTRAVENOUS
     Route: 042
     Dates: start: 20031224
  3. DOCETAXEL(DOCETAXEL) [Suspect]
     Indication: BREAST CANCER
     Dosage: 150 MG, Q3W, INTRAVENOUS
     Route: 042
     Dates: start: 20031219
  4. ACETAMINOPHEN [Concomitant]
  5. DEXAMETHASONE [Concomitant]

REACTIONS (2)
  - CLOSTRIDIAL INFECTION [None]
  - DIARRHOEA [None]
